FAERS Safety Report 22186114 (Version 2)
Quarter: 2023Q2

REPORT INFORMATION
  Report Type: Spontaneous
  Country: UY (occurrence: UY)
  Receive Date: 20230407
  Receipt Date: 20230601
  Transmission Date: 20230722
  Serious: Yes (Hospitalization, Other)
  Sender: FDA-Public Use
  Company Number: UY-AMERICAN REGENT INC-2023000776

PATIENT
  Age: 79 Year
  Sex: Male

DRUGS (13)
  1. FERINJECT [Suspect]
     Active Substance: FERRIC CARBOXYMALTOSE
     Indication: Cardiac failure
     Dosage: 500 MG DILUTED IN 100 ML OF PHYSIOLOGICAL SERUM
     Dates: start: 20230318, end: 20230318
  2. FERINJECT [Suspect]
     Active Substance: FERRIC CARBOXYMALTOSE
     Indication: Anaemia
  3. IRON POLYMALTOSE [Suspect]
     Active Substance: IRON POLYMALTOSE
     Indication: Cardiac failure
     Dosage: UNK
     Route: 048
     Dates: start: 202303
  4. FUROSEMIDE [Concomitant]
     Active Substance: FUROSEMIDE
     Indication: Product used for unknown indication
     Dosage: MORNING
     Route: 065
  5. OMEPRAZOLE [Concomitant]
     Active Substance: OMEPRAZOLE
     Indication: Product used for unknown indication
     Dosage: MORNING
     Route: 065
  6. VONTROL [BISOPROLOL] [Concomitant]
     Indication: Product used for unknown indication
     Dosage: MORNING AND NIGHT (2 IN 1 D)
     Route: 065
  7. APIXABAN [Concomitant]
     Active Substance: APIXABAN
     Indication: Product used for unknown indication
     Dosage: MORNING AND NIGHT (2 IN 1 D)
     Route: 065
  8. METFORMIN [Concomitant]
     Active Substance: METFORMIN HYDROCHLORIDE
     Indication: Product used for unknown indication
     Dosage: MORNING AND NIGHT (2 IN 1 D)
     Route: 065
  9. RENALIC [Concomitant]
     Indication: Product used for unknown indication
     Dosage: MORNING
     Route: 065
  10. SPIRONOLACTONE [Concomitant]
     Active Substance: SPIRONOLACTONE
     Indication: Product used for unknown indication
     Dosage: MORNING
     Route: 065
  11. XIURIC [Concomitant]
     Indication: Product used for unknown indication
     Dosage: ^80^
     Route: 065
  12. ATORVASTATIN [Concomitant]
     Active Substance: ATORVASTATIN
     Indication: Product used for unknown indication
     Dosage: AT NIGHT
     Route: 065
  13. CIPROFIBRATE [Concomitant]
     Active Substance: CIPROFIBRATE
     Indication: Product used for unknown indication
     Dosage: AT NIGHT
     Route: 065

REACTIONS (2)
  - Pulmonary oedema [Unknown]
  - Hypotension [Unknown]

NARRATIVE: CASE EVENT DATE: 20230301
